FAERS Safety Report 22655328 (Version 1)
Quarter: 2023Q2

REPORT INFORMATION
  Report Type: Spontaneous
  Country: AU (occurrence: AU)
  Receive Date: 20230629
  Receipt Date: 20230629
  Transmission Date: 20230721
  Serious: Yes (Other)
  Sender: FDA-Public Use
  Company Number: AU-BAXTER-2023BAX024845

PATIENT
  Sex: Female

DRUGS (15)
  1. DOXORUBICIN [Suspect]
     Active Substance: DOXORUBICIN
     Indication: Diffuse large B-cell lymphoma refractory
     Dosage: AS A PART OF R-MINI CHOP REGIMEN X 2 (INITAL)
     Route: 065
  2. DOXORUBICIN [Suspect]
     Active Substance: DOXORUBICIN
     Indication: Diffuse large B-cell lymphoma recurrent
     Dosage: AS A PART OF R-CHOP REGIMEN X 2 (SWITCHED)
     Route: 065
  3. CYCLOPHOSPHAMIDE [Suspect]
     Active Substance: CYCLOPHOSPHAMIDE
     Indication: Diffuse large B-cell lymphoma recurrent
     Dosage: AS A PART OF R-MINI CHOP REGIMEN X 2 (INITAL)
     Route: 065
  4. CYCLOPHOSPHAMIDE [Suspect]
     Active Substance: CYCLOPHOSPHAMIDE
     Indication: Diffuse large B-cell lymphoma refractory
     Dosage: AS A PART OF R-CHOP REGIMEN X 2 (SWITCHED)
     Route: 065
  5. RITUXIMAB [Suspect]
     Active Substance: RITUXIMAB
     Indication: Diffuse large B-cell lymphoma recurrent
     Dosage: AS A PART OF R-MINI CHOP REGIMEN X 2 (INITAL)
     Route: 065
  6. RITUXIMAB [Suspect]
     Active Substance: RITUXIMAB
     Indication: Diffuse large B-cell lymphoma refractory
     Dosage: AS A PART OF R-CHOP REGIMEN X2 (SWITCHED)
     Route: 065
  7. RITUXIMAB [Suspect]
     Active Substance: RITUXIMAB
     Dosage: AS A PART OF R-GEM OX REGIMEN, SECOND LINE TREATMENT, C1
     Route: 065
     Dates: start: 20230605
  8. VINCRISTINE [Suspect]
     Active Substance: VINCRISTINE
     Indication: Diffuse large B-cell lymphoma recurrent
     Dosage: AS A PART OF R-MINI CHOP REGIMEN X 2 (INITAL)
     Route: 065
  9. VINCRISTINE [Suspect]
     Active Substance: VINCRISTINE
     Indication: Diffuse large B-cell lymphoma refractory
     Dosage: AS A PART OF R-CHOP REGIMEN X 2 (SWICHED)
     Route: 065
  10. PREDNISONE [Suspect]
     Active Substance: PREDNISONE
     Indication: Diffuse large B-cell lymphoma recurrent
     Dosage: AS A PART OF R-MINI CHOP REGIMEN X 2 (INITAL)
     Route: 065
  11. PREDNISONE [Suspect]
     Active Substance: PREDNISONE
     Indication: Diffuse large B-cell lymphoma refractory
     Dosage: AS A PART OF R-CHOP REGIMEN X 2 (SWITCHED)
     Route: 065
  12. GEMCITABINE [Suspect]
     Active Substance: GEMCITABINE
     Indication: Diffuse large B-cell lymphoma recurrent
     Dosage: AS A PART OF R-GEM OX REGIMEN, SECOND LINE TREATMENT, C1
     Route: 065
     Dates: start: 20230605
  13. GEMCITABINE [Suspect]
     Active Substance: GEMCITABINE
     Indication: Diffuse large B-cell lymphoma refractory
  14. OXALIPLATIN [Suspect]
     Active Substance: OXALIPLATIN
     Indication: Diffuse large B-cell lymphoma recurrent
     Dosage: AS A PART OF R-GEM OX REGIMEN, SECOND LINE TREATMENT, C1
     Route: 065
     Dates: start: 20230605
  15. OXALIPLATIN [Suspect]
     Active Substance: OXALIPLATIN
     Indication: Diffuse large B-cell lymphoma refractory

REACTIONS (3)
  - Diffuse large B-cell lymphoma recurrent [Not Recovered/Not Resolved]
  - Diffuse large B-cell lymphoma refractory [Not Recovered/Not Resolved]
  - Disease progression [Not Recovered/Not Resolved]
